FAERS Safety Report 5585831-7 (Version None)
Quarter: 2008Q1

REPORT INFORMATION
  Report Type: 
  Country: None (occurrence: None)
  Receive Date: 20080109
  Receipt Date: 20071226
  Transmission Date: 20080703
  Serious: Yes (Hospitalization)
  Sender: FDA-Public Use
  Company Number: JP-GENENTECH-253669

PATIENT
  Sex: Male

DRUGS (4)
  1. BEVACIZUMAB [Suspect]
     Indication: RECTAL CANCER
     Dosage: 5 MG/KG, Q2W
     Route: 041
     Dates: start: 20071221
  2. IRINOTECAN HCL [Suspect]
     Indication: RECTAL CANCER
     Route: 041
  3. ISOVORIN [Suspect]
     Indication: RECTAL CANCER
     Route: 041
  4. FLUOROURACIL [Suspect]
     Indication: RECTAL CANCER
     Route: 042

REACTIONS (2)
  - ALTERED STATE OF CONSCIOUSNESS [None]
  - HYPERTENSION [None]
